FAERS Safety Report 7996799-8 (Version None)
Quarter: 2011Q4

REPORT INFORMATION
  Report Type: 
  Country: None (occurrence: None)
  Receive Date: 20111221
  Receipt Date: 20111209
  Transmission Date: 20120403
  Serious: Yes (Other)
  Sender: FDA-Public Use
  Company Number: IT-JNJFOC-20111206036

PATIENT
  Age: 55 Year
  Sex: Female

DRUGS (12)
  1. REMICADE [Suspect]
     Indication: RHEUMATOID ARTHRITIS
     Route: 042
     Dates: start: 20091211
  2. PANTOPRAZOLE [Concomitant]
     Route: 048
     Dates: start: 20091211
  3. CHLOR-TRIMETON [Concomitant]
     Route: 030
     Dates: start: 20100324
  4. VITAMIN D [Concomitant]
     Route: 048
     Dates: start: 20091211
  5. CALCIUM VITAMINE D3 [Concomitant]
     Route: 065
  6. ACETAMOL [Concomitant]
     Route: 048
     Dates: start: 20100324, end: 20100324
  7. METHYLPREDNISOLONE [Concomitant]
     Route: 042
     Dates: start: 20100324
  8. FOLINA [Concomitant]
     Route: 048
     Dates: start: 20091211, end: 20110310
  9. RISEDRONATE SODIUM [Concomitant]
     Route: 048
     Dates: start: 20091211
  10. METHOTREXATE [Suspect]
     Indication: RHEUMATOID ARTHRITIS
     Route: 030
     Dates: start: 20091211
  11. REMICADE [Suspect]
     Route: 042
     Dates: end: 20110204
  12. PANTOPRAZOLE [Concomitant]
     Route: 065

REACTIONS (5)
  - MALAISE [None]
  - RESPIRATORY FAILURE [None]
  - PALPITATIONS [None]
  - ASTHENIA [None]
  - BRONCHITIS [None]
